FAERS Safety Report 7498579-9 (Version None)
Quarter: 2011Q2

REPORT INFORMATION
  Report Type: 
  Country: None (occurrence: None)
  Receive Date: 20110524
  Receipt Date: 20100712
  Transmission Date: 20111010
  Serious: Yes (Other)
  Sender: FDA-Public Use
  Company Number: US-BAYER-201027868NA

PATIENT
  Age: 25 Year
  Sex: Female
  Weight: 83 kg

DRUGS (5)
  1. ASCORBIC ACID [Concomitant]
     Dosage: UNK
     Dates: start: 20060101
  2. IBUPROFEN [Concomitant]
     Dosage: UNK
     Dates: start: 20000101
  3. FLUTICASONE PROPIONATE [Concomitant]
  4. ACIPHEX [Concomitant]
  5. YAZ [Suspect]
     Indication: CONTRACEPTION
     Dosage: UNK UNK, UNK
     Route: 048
     Dates: start: 20070701, end: 20100601

REACTIONS (3)
  - CHOLECYSTITIS CHRONIC [None]
  - CHOLELITHIASIS [None]
  - CHOLECYSTECTOMY [None]
